FAERS Safety Report 8346852-4 (Version None)
Quarter: 2012Q2

REPORT INFORMATION
  Report Type: 
  Country: None (occurrence: None)
  Receive Date: 20120509
  Receipt Date: 20120427
  Transmission Date: 20120825
  Serious: Yes (Other)
  Sender: FDA-Public Use
  Company Number: US-SANOFI-AVENTIS-2012SA030204

PATIENT
  Age: 79 Year
  Sex: Male

DRUGS (1)
  1. ALLEGRA-D 12 HOUR [Suspect]
     Dates: start: 20120101, end: 20120101

REACTIONS (3)
  - NASAL SEPTUM DEVIATION [None]
  - INSOMNIA [None]
  - HYPERSENSITIVITY [None]
